FAERS Safety Report 8444601-2 (Version None)
Quarter: 2012Q2

REPORT INFORMATION
  Report Type: 
  Country: None (occurrence: None)
  Receive Date: 20120618
  Receipt Date: 20120606
  Transmission Date: 20120825
  Serious: Yes (Hospitalization)
  Sender: FDA-Public Use
  Company Number: US-BAYER-201023028NA

PATIENT
  Age: 19 Year
  Sex: Female
  Weight: 117.91 kg

DRUGS (3)
  1. WARFARIN SODIUM [Concomitant]
  2. IBUPROFEN (ADVIL) [Concomitant]
  3. YAZ [Suspect]
     Indication: CONTRACEPTION
     Dosage: UNK UNK, QD
     Route: 048
     Dates: start: 20080101, end: 20080701

REACTIONS (6)
  - ASPHYXIA [None]
  - RALES [None]
  - PAINFUL RESPIRATION [None]
  - OEDEMA PERIPHERAL [None]
  - PULMONARY EMBOLISM [None]
  - CHEST PAIN [None]
